FAERS Safety Report 21182941 (Version 2)
Quarter: 2022Q3

REPORT INFORMATION
  Report Type: Report from Study
  Country: FR (occurrence: FR)
  Receive Date: 20220808
  Receipt Date: 20220915
  Transmission Date: 20221027
  Serious: Yes (Disabling)
  Sender: FDA-Public Use
  Company Number: FR-NOVARTISPH-NVSC2022FR177870

PATIENT
  Age: 12 Year
  Sex: Male
  Weight: 42 kg

DRUGS (1)
  1. OMNITROPE [Suspect]
     Active Substance: SOMATROPIN
     Indication: Foetal growth restriction
     Dosage: 1.4 MG
     Route: 058
     Dates: start: 20220520, end: 20220712

REACTIONS (3)
  - Pathological fracture [Recovered/Resolved]
  - Lack of administration site rotation [Unknown]
  - Product use in unapproved indication [Unknown]
